FAERS Safety Report 4352580-2 (Version None)
Quarter: 2004Q2

REPORT INFORMATION
  Report Type: 
  Country: None (occurrence: None)
  Receive Date: 20040427
  Receipt Date: 20040315
  Transmission Date: 20050107
  Serious: No
  Sender: FDA-Public Use
  Company Number: WAES 0403USA01375

PATIENT
  Age: 21 Year
  Sex: Male

DRUGS (3)
  1. EMEND [Suspect]
     Indication: PROPHYLACTIC CHEMOTHERAPY
     Dosage: 125MG/UNK/PO
     Route: 048
  2. KYTRIL [Concomitant]
  3. DEXAMETHASONE [Concomitant]

REACTIONS (1)
  - TACHYCARDIA [None]
